FAERS Safety Report 20204710 (Version 2)
Quarter: 2022Q1

REPORT INFORMATION
  Report Type: Spontaneous
  Country: US (occurrence: US)
  Receive Date: 20211220
  Receipt Date: 20220120
  Transmission Date: 20220423
  Serious: No
  Sender: FDA-Public Use
  Company Number: US-CELGENE-USA-20211204083

PATIENT
  Age: 90 Year
  Sex: Male
  Weight: 59.020 kg

DRUGS (2)
  1. REVLIMID [Suspect]
     Active Substance: LENALIDOMIDE
     Indication: Plasma cell myeloma
     Dosage: 20 MILLIGRAM
     Route: 048
     Dates: start: 202008
  2. REVLIMID [Suspect]
     Active Substance: LENALIDOMIDE
     Dosage: 20 MILLIGRAM
     Route: 048
     Dates: start: 20210101

REACTIONS (4)
  - Confusional state [Not Recovered/Not Resolved]
  - Mental disorder [Unknown]
  - Unevaluable event [Unknown]
  - Depression [Unknown]

NARRATIVE: CASE EVENT DATE: 20211001
